FAERS Safety Report 4840802-0 (Version None)
Quarter: 2005Q4

REPORT INFORMATION
  Report Type: 
  Country: None (occurrence: None)
  Receive Date: 20051130
  Receipt Date: 20050105
  Transmission Date: 20060501
  Serious: No
  Sender: FDA-Public Use
  Company Number: US-BRISTOL-MYERS SQUIBB COMPANY-12815130

PATIENT
  Age: 56 Year
  Sex: Male
  Weight: 77 kg

DRUGS (1)
  1. AVALIDE [Suspect]
     Indication: HYPERTENSION
     Dosage: DURATION OF THERAPY:  FEW YEARS
     Route: 048

REACTIONS (3)
  - BLOOD PRESSURE INCREASED [None]
  - NASAL CONGESTION [None]
  - RESPIRATORY TRACT CONGESTION [None]
